FAERS Safety Report 12169395 (Version 2)
Quarter: 2016Q2

REPORT INFORMATION
  Report Type: Spontaneous
  Country: JP (occurrence: JP)
  Receive Date: 20160310
  Receipt Date: 20160518
  Transmission Date: 20160815
  Serious: Yes (Life-Threatening, Hospitalization)
  Sender: FDA-Public Use
  Company Number: JP-BAYER-2016-040230

PATIENT
  Age: 71 Year
  Sex: Male
  Weight: 65 kg

DRUGS (7)
  1. STIVARGA [Suspect]
     Active Substance: REGORAFENIB
     Indication: RECTAL CANCER
     Dosage: 120 MG, QD
     Route: 048
     Dates: start: 20151010, end: 20151019
  2. STIVARGA [Suspect]
     Active Substance: REGORAFENIB
     Indication: RECTAL CANCER
     Dosage: 80 MG, QD
     Route: 048
     Dates: start: 20160116, end: 20160128
  3. LOXOPROFEN [Concomitant]
     Active Substance: LOXOPROFEN
     Indication: RECTAL CANCER
     Dosage: DAILY DOSE 60 MG
     Route: 048
     Dates: start: 20150209, end: 20151019
  4. TAKEPRON [Concomitant]
     Active Substance: LANSOPRAZOLE
     Indication: PROPHYLAXIS AGAINST GASTROINTESTINAL ULCER
     Dosage: DAILY DOSE 15 MG
     Route: 048
  5. AMLODIPINE [Concomitant]
     Active Substance: AMLODIPINE BESYLATE
     Indication: HYPERTENSION
     Dosage: DAILY DOSE 2.5 MG
     Route: 048
     Dates: end: 20151019
  6. KUBACRON [Concomitant]
     Dosage: DAILY DOSE 2 MG
     Route: 048
     Dates: end: 20151019
  7. MAGLAX [Concomitant]
     Active Substance: MAGNESIUM OXIDE
     Dosage: DAILY DOSE 350 MG
     Route: 048
     Dates: end: 20151019

REACTIONS (4)
  - Hepatic encephalopathy [Recovered/Resolved]
  - Interstitial lung disease [Recovered/Resolved]
  - Gastrointestinal haemorrhage [Recovered/Resolved]
  - Acute kidney injury [Recovered/Resolved]

NARRATIVE: CASE EVENT DATE: 20151020
